FAERS Safety Report 6337017-6 (Version None)
Quarter: 2009Q3

REPORT INFORMATION
  Report Type: 
  Country: None (occurrence: None)
  Receive Date: 20090820
  Receipt Date: 20090811
  Transmission Date: 20100115
  Serious: No
  Sender: FDA-Public Use
  Company Number: 2009020488

PATIENT
  Age: 10 Year
  Sex: Male

DRUGS (1)
  1. VIVAGLOBIN [Suspect]
     Dosage: 7.36 G, EVERY 7 DAYS SUBCUTANEOUS
     Route: 058
     Dates: start: 20061001

REACTIONS (4)
  - ANTI-HBC IGG ANTIBODY POSITIVE [None]
  - HEPATITIS B ANTIGEN POSITIVE [None]
  - HEPATITIS B POSITIVE [None]
  - TRANSMISSION OF AN INFECTIOUS AGENT VIA A MEDICINAL PRODUCT [None]
